FAERS Safety Report 10046054 (Version 1)
Quarter: 2014Q1

REPORT INFORMATION
  Report Type: Report from Study
  Country: CN (occurrence: CN)
  Receive Date: 20140331
  Receipt Date: 20140331
  Transmission Date: 20141002
  Serious: Yes (Other)
  Sender: FDA-Public Use
  Company Number: CN-ROCHE-1374340

PATIENT
  Age: 43 Year
  Sex: Female

DRUGS (3)
  1. PEGASYS [Suspect]
     Indication: HEPATITIS C
     Route: 058
     Dates: start: 201209, end: 201302
  2. PEGASYS [Suspect]
     Route: 058
     Dates: start: 201302, end: 201306
  3. PEGASYS [Suspect]
     Route: 058
     Dates: start: 201306

REACTIONS (2)
  - White blood cell count decreased [Unknown]
  - Cough [Unknown]
